FAERS Safety Report 6675051-7 (Version None)
Quarter: 2010Q2

REPORT INFORMATION
  Report Type: 
  Country: None (occurrence: None)
  Receive Date: 20100409
  Receipt Date: 20100331
  Transmission Date: 20101027
  Serious: Yes (Life-Threatening)
  Sender: FDA-Public Use
  Company Number: FR-JNJFOC-20100302055

PATIENT
  Sex: Male
  Weight: 2.18 kg

DRUGS (11)
  1. REMICADE [Suspect]
     Indication: DRUG EXPOSURE DURING PREGNANCY
     Route: 064
  2. REMICADE [Suspect]
     Route: 064
  3. REMICADE [Suspect]
     Route: 064
  4. REMICADE [Suspect]
     Route: 064
  5. REMICADE [Suspect]
     Route: 064
  6. REMICADE [Suspect]
     Route: 064
  7. REMICADE [Suspect]
     Route: 064
  8. REMICADE [Suspect]
     Route: 064
  9. REMICADE [Suspect]
     Route: 064
  10. REMICADE [Suspect]
     Route: 064
  11. CORTANCYL [Concomitant]
     Indication: DRUG EXPOSURE DURING PREGNANCY
     Route: 064

REACTIONS (2)
  - NEONATAL RESPIRATORY DISTRESS SYNDROME [None]
  - PREMATURE BABY [None]
